FAERS Safety Report 8013220-4 (Version None)
Quarter: 2011Q4

REPORT INFORMATION
  Report Type: 
  Country: None (occurrence: None)
  Receive Date: 20111229
  Receipt Date: 20111229
  Transmission Date: 20120403
  Serious: Yes (Other)
  Sender: FDA-Public Use
  Company Number: None

PATIENT
  Age: 64 Year
  Sex: Male
  Weight: 72.574 kg

DRUGS (1)
  1. GAMUNEX [Suspect]
     Indication: IMMUNODEFICIENCY COMMON VARIABLE
     Dosage: 30 GRAMS
     Route: 041
     Dates: start: 20111129, end: 20111227

REACTIONS (4)
  - PAIN IN EXTREMITY [None]
  - FATIGUE [None]
  - NAUSEA [None]
  - HEADACHE [None]
